FAERS Safety Report 21188602 (Version 2)
Quarter: 2022Q3

REPORT INFORMATION
  Report Type: Spontaneous
  Country: US (occurrence: US)
  Receive Date: 20220809
  Receipt Date: 20220829
  Transmission Date: 20221026
  Serious: Yes (Life-Threatening, Hospitalization)
  Sender: FDA-Public Use
  Company Number: US-BIOGEN-2022BI01144813

PATIENT
  Sex: Female

DRUGS (4)
  1. PLEGRIDY [Suspect]
     Active Substance: PEGINTERFERON BETA-1A
     Indication: Multiple sclerosis
     Route: 050
     Dates: start: 20190806
  2. PLEGRIDY [Suspect]
     Active Substance: PEGINTERFERON BETA-1A
     Dosage: INJECT 0.5 ML (125 MICROGRAM) SUBCUTANEOUSLY EVERY 2 WEEKS
     Route: 050
  3. COUMADIN [Concomitant]
     Active Substance: WARFARIN SODIUM
     Indication: Product used for unknown indication
     Route: 050
  4. ATORVASTATIN CALCIUM [Concomitant]
     Active Substance: ATORVASTATIN CALCIUM
     Indication: Product used for unknown indication
     Route: 050

REACTIONS (1)
  - Nephrolithiasis [Unknown]
